FAERS Safety Report 13794117 (Version 1)
Quarter: 2017Q3

REPORT INFORMATION
  Report Type: Spontaneous
  Country: FR (occurrence: FR)
  Receive Date: 20170726
  Receipt Date: 20170726
  Transmission Date: 20171127
  Serious: Yes (Hospitalization, Congenital Anomaly)
  Sender: FDA-Public Use
  Company Number: FR-GLAXOSMITHKLINE-FR2017GSK112897

PATIENT
  Sex: Female
  Weight: 2 kg

DRUGS (7)
  1. VENTOLINE [Suspect]
     Active Substance: ALBUTEROL
     Indication: ASTHMA
     Dosage: UNK, PRN, LONG-STANDING TREATMENT
     Route: 064
  2. LOVENOX [Suspect]
     Active Substance: ENOXAPARIN SODIUM
     Indication: ANTIPHOSPHOLIPID SYNDROME
     Dosage: 0.6 DF, QD
     Route: 064
     Dates: start: 201109
  3. LOVENOX [Suspect]
     Active Substance: ENOXAPARIN SODIUM
     Dosage: 0.4 DF, QD
     Route: 064
  4. PROPESS [Concomitant]
     Active Substance: DINOPROSTONE
     Indication: PRODUCT USED FOR UNKNOWN INDICATION
     Dosage: UNK
     Dates: start: 201201
  5. HUMIRA [Suspect]
     Active Substance: ADALIMUMAB
     Indication: CROHN^S DISEASE
     Dosage: 80 MG, Z, EVERY 15 DAYS
     Route: 064
     Dates: start: 200907, end: 20111110
  6. CELESTENE [Concomitant]
     Active Substance: BETAMETHASONE
     Indication: PRODUCT USED FOR UNKNOWN INDICATION
     Dosage: UNK
     Dates: start: 20111216, end: 20111217
  7. TRACTOCILE [Concomitant]
     Active Substance: ATOSIBAN
     Indication: UTERINE CONTRACTIONS DURING PREGNANCY
     Dosage: UNK
     Dates: start: 20111223, end: 20111224

REACTIONS (2)
  - Foetal exposure during pregnancy [Unknown]
  - Premature baby [Recovered/Resolved]

NARRATIVE: CASE EVENT DATE: 201111
